FAERS Safety Report 7793165-5 (Version None)
Quarter: 2011Q3

REPORT INFORMATION
  Report Type: 
  Country: None (occurrence: None)
  Receive Date: 20110930
  Receipt Date: 20110930
  Transmission Date: 20111222
  Serious: Yes (Life-Threatening, Other)
  Sender: FDA-Public Use
  Company Number: None

PATIENT
  Age: 73 Year
  Sex: Female
  Weight: 56.246 kg

DRUGS (1)
  1. SEROQUEL [Suspect]
     Dosage: 1 1 AT HOME, SEVERAL IN HOSPITAL
     Dates: start: 20110704

REACTIONS (3)
  - INJURY [None]
  - SOMNOLENCE [None]
  - SYNCOPE [None]
